FAERS Safety Report 6612439-4 (Version None)
Quarter: 2010Q1

REPORT INFORMATION
  Report Type: 
  Country: None (occurrence: None)
  Receive Date: 20100303
  Receipt Date: 20100225
  Transmission Date: 20100710
  Serious: Yes (Death, Other)
  Sender: FDA-Public Use
  Company Number: PHHY2010FR09704

PATIENT
  Age: 88 Year
  Sex: Female

DRUGS (5)
  1. ZOMETA [Suspect]
     Indication: MULTIPLE MYELOMA
     Dosage: UNK
  2. ALKERAN [Concomitant]
  3. CORTICOSTEROID NOS [Concomitant]
  4. THALIDOMIDE [Concomitant]
  5. VELCADE [Concomitant]

REACTIONS (3)
  - BONE NEOPLASM MALIGNANT [None]
  - MALIGNANT NEOPLASM PROGRESSION [None]
  - OSTEONECROSIS [None]
